FAERS Safety Report 8071209-3 (Version None)
Quarter: 2012Q1

REPORT INFORMATION
  Report Type: 
  Country: None (occurrence: None)
  Receive Date: 20120125
  Receipt Date: 20120119
  Transmission Date: 20120608
  Serious: Yes (Death, Hospitalization, Other)
  Sender: FDA-Public Use
  Company Number: PHHY2012BR005430

PATIENT
  Age: 82 Year
  Sex: Female

DRUGS (2)
  1. EVEROLIMUS [Suspect]
     Indication: BREAST CANCER
     Dosage: 10 MG, DAILY
     Route: 048
  2. EXEMESTANE [Concomitant]

REACTIONS (4)
  - ACUTE RESPIRATORY FAILURE [None]
  - CONDITION AGGRAVATED [None]
  - DEEP VEIN THROMBOSIS [None]
  - DEATH [None]
